FAERS Safety Report 21068133 (Version 2)
Quarter: 2022Q3

REPORT INFORMATION
  Report Type: Spontaneous
  Country: JP (occurrence: JP)
  Receive Date: 20220712
  Receipt Date: 20220727
  Transmission Date: 20221026
  Serious: Yes (Hospitalization)
  Sender: FDA-Public Use
  Company Number: JP-JNJFOC-20220645832

PATIENT
  Age: 85 Year
  Sex: Female

DRUGS (5)
  1. RISPERDAL CONSTA [Suspect]
     Active Substance: RISPERIDONE
     Indication: Schizophrenia
     Dosage: GLUTEAL MUSCLE
     Route: 030
     Dates: start: 20220509, end: 20220509
  2. RISPERDAL CONSTA [Suspect]
     Active Substance: RISPERIDONE
     Indication: Schizophrenia
     Dosage: GLUTEAL MUSCLE
     Route: 030
     Dates: start: 20220523, end: 20220523
  3. RISPERDAL CONSTA [Suspect]
     Active Substance: RISPERIDONE
     Indication: Schizophrenia
     Route: 030
     Dates: start: 20220606, end: 20220606
  4. RISPERDAL CONSTA [Suspect]
     Active Substance: RISPERIDONE
  5. BLONANSERIN [Concomitant]
     Active Substance: BLONANSERIN
     Indication: Schizophrenia
     Dosage: DOSE UNKNOWN
     Route: 062

REACTIONS (2)
  - Gastrointestinal hypomotility [Recovered/Resolved]
  - Parkinsonism [Recovered/Resolved]

NARRATIVE: CASE EVENT DATE: 20220101
